FAERS Safety Report 4659113-1 (Version None)
Quarter: 2005Q2

REPORT INFORMATION
  Report Type: 
  Country: None (occurrence: None)
  Receive Date: 20050502
  Receipt Date: 20050118
  Transmission Date: 20051028
  Serious: No
  Sender: FDA-Public Use
  Company Number: 200418860US

PATIENT
  Age: 62 Year
  Sex: Female
  Weight: 72.7 kg

DRUGS (1)
  1. KETEK [Suspect]
     Indication: SINUSITIS
     Dosage: 400 (2 TABLETS) X 5 DAYS MG QD PO
     Route: 048
     Dates: start: 20041101

REACTIONS (2)
  - MOUTH ULCERATION [None]
  - ORAL CANDIDIASIS [None]
